FAERS Safety Report 6831029-1 (Version None)
Quarter: 2010Q2

REPORT INFORMATION
  Report Type: 
  Country: None (occurrence: None)
  Receive Date: 20100520
  Receipt Date: 20090506
  Transmission Date: 20101027
  Serious: Yes (Other)
  Sender: FDA-Public Use
  Company Number: 2009210868

PATIENT
  Age: 60 Year
  Sex: Female

DRUGS (9)
  1. PROVERA [Suspect]
     Indication: HORMONE REPLACEMENT THERAPY
     Dosage: 2.5-10MG, ORAL
     Route: 048
  2. PROMETRIUM [Suspect]
     Indication: HORMONE REPLACEMENT THERAPY
  3. CRINONE [Suspect]
     Indication: HORMONE REPLACEMENT THERAPY
  4. PREMARIN [Suspect]
     Indication: HORMONE REPLACEMENT THERAPY
  5. ESTRADIOL [Suspect]
     Indication: HORMONE REPLACEMENT THERAPY
  6. ESTRONE [Suspect]
     Indication: HORMONE REPLACEMENT THERAPY
  7. ESTRIOL (ESTRIOL) [Suspect]
     Indication: HORMONE REPLACEMENT THERAPY
  8. AMINOPYRIDINE (FAMPRIDINE) [Concomitant]
  9. BACLOFEN [Concomitant]

REACTIONS (1)
  - BREAST CANCER FEMALE [None]
